FAERS Safety Report 4730218-X (Version None)
Quarter: 2005Q3

REPORT INFORMATION
  Report Type: 
  Country: None (occurrence: None)
  Receive Date: 20050801
  Receipt Date: 20050511
  Transmission Date: 20060218
  Serious: Yes (Death, Hospitalization)
  Sender: FDA-Public Use
  Company Number: PHHO2005CZ07532

PATIENT
  Age: 45 Year
  Sex: Male
  Weight: 50 kg

DRUGS (3)
  1. MYCOPHENOLIC ACID [Suspect]
     Indication: RENAL TRANSPLANT
     Dosage: 1440 MG/DAY
     Route: 048
     Dates: start: 20050315, end: 20050425
  2. CYCLOSPORINE [Suspect]
     Indication: RENAL TRANSPLANT
     Dosage: 100 MG, BID
     Route: 048
     Dates: start: 20050318, end: 20050424
  3. PREDNISONE [Concomitant]
     Indication: RENAL TRANSPLANT
     Dosage: 5 MG DAILY
     Route: 048
     Dates: start: 20040812, end: 20050424

REACTIONS (10)
  - ABDOMINAL PAIN [None]
  - ABSCESS DRAINAGE [None]
  - DIVERTICULAR PERFORATION [None]
  - DIVERTICULITIS [None]
  - ILEOSTOMY [None]
  - INTESTINAL GANGRENE [None]
  - PERITONITIS [None]
  - SIGMOIDECTOMY [None]
  - SURGERY [None]
  - WOUND INFECTION [None]
